FAERS Safety Report 7161698-0 (Version None)
Quarter: 2010Q4

REPORT INFORMATION
  Report Type: 
  Country: None (occurrence: None)
  Receive Date: 20101201
  Receipt Date: 20101124
  Transmission Date: 20110411
  Serious: Yes (Hospitalization)
  Sender: FDA-Public Use
  Company Number: 2010SP062058

PATIENT
  Age: 52 Year
  Sex: Male

DRUGS (1)
  1. REMERON [Suspect]
     Indication: ANTIDEPRESSANT THERAPY
     Dosage: 30 MG
     Dates: start: 20100817, end: 20100915

REACTIONS (1)
  - PRIAPISM [None]
